FAERS Safety Report 8963122 (Version 3)
Quarter: 2013Q1

REPORT INFORMATION
  Report Type: Report from Study
  Country: AT (occurrence: AT)
  Receive Date: 20121214
  Receipt Date: 20130308
  Transmission Date: 20140127
  Serious: Yes (Hospitalization, Other)
  Sender: FDA-Public Use
  Company Number: AT-ABBOTT-12P-009-1018602-00

PATIENT
  Age: 30 Year
  Sex: Male
  Weight: 78 kg

DRUGS (1)
  1. HUMIRA [Suspect]
     Indication: CROHN^S DISEASE
     Route: 058
     Dates: start: 20090609, end: 20120920

REACTIONS (2)
  - Ileal stenosis [Recovered/Resolved]
  - Enterocolonic fistula [Recovered/Resolved]
